FAERS Safety Report 11962184 (Version 2)
Quarter: 2016Q1

REPORT INFORMATION
  Report Type: Report from Study
  Country: US (occurrence: US)
  Receive Date: 20160126
  Receipt Date: 20160314
  Transmission Date: 20160526
  Serious: No
  Sender: FDA-Public Use
  Company Number: US-AMGEN-USASL2016006241

PATIENT
  Age: 51 Year
  Sex: Male

DRUGS (1)
  1. ENBREL [Suspect]
     Active Substance: ETANERCEPT
     Indication: PSORIASIS
     Dosage: 50 MG, 2 TIMES/WK
     Route: 065
     Dates: start: 20151209, end: 20160117

REACTIONS (7)
  - Injection site bruising [Not Recovered/Not Resolved]
  - Pain [Unknown]
  - Cyst [Unknown]
  - Pruritus generalised [Unknown]
  - Nasopharyngitis [Unknown]
  - Neck mass [Unknown]
  - Scab [Unknown]
